FAERS Safety Report 6762199-1 (Version None)
Quarter: 2010Q2

REPORT INFORMATION
  Report Type: 
  Country: None (occurrence: None)
  Receive Date: 20100609
  Receipt Date: 20100320
  Transmission Date: 20101027
  Serious: No
  Sender: FDA-Public Use
  Company Number: US-KINGPHARMUSA00001-K201000351

PATIENT
  Age: 31 Year
  Sex: Male
  Weight: 77.098 kg

DRUGS (2)
  1. EMBEDA [Suspect]
     Indication: BACK PAIN
     Dosage: 20 MG, EVERY 12 HOURS
     Route: 048
     Dates: start: 20100313
  2. SERTRALINE HCL [Concomitant]
     Dosage: UNK

REACTIONS (1)
  - DRUG INEFFECTIVE [None]
